FAERS Safety Report 5755367-9 (Version None)
Quarter: 2008Q2

REPORT INFORMATION
  Report Type: 
  Country: None (occurrence: None)
  Receive Date: 20080602
  Receipt Date: 20080522
  Transmission Date: 20081010
  Serious: Yes (Hospitalization)
  Sender: FDA-Public Use
  Company Number: FR-ROCHE-566301

PATIENT
  Age: 8 Year
  Sex: Female

DRUGS (1)
  1. RIVOTRIL [Suspect]
     Indication: DRUG USE FOR UNKNOWN INDICATION
     Dosage: DOSAGE: '2X20 DROPS'
     Route: 048
     Dates: start: 20080520

REACTIONS (4)
  - AGITATION [None]
  - ATAXIA [None]
  - SLEEP DISORDER [None]
  - SPEECH DISORDER [None]
